FAERS Safety Report 24277589 (Version 1)
Quarter: 2024Q3

REPORT INFORMATION
  Report Type: Spontaneous
  Country: US (occurrence: US)
  Receive Date: 20240903
  Receipt Date: 20240903
  Transmission Date: 20241017
  Serious: Yes (Other)
  Sender: JOHNSON AND JOHNSON
  Company Number: US-JNJFOC-20240879131

PATIENT
  Sex: Male

DRUGS (1)
  1. LISTERINE CLINICAL SOLUTIONS TEETH STRENGTH ALPINE MINT [Suspect]
     Active Substance: SODIUM FLUORIDE
     Indication: Accidental exposure to product
     Route: 048
     Dates: start: 20240828

REACTIONS (2)
  - Choking [Not Recovered/Not Resolved]
  - Accidental exposure to product [Unknown]

NARRATIVE: CASE EVENT DATE: 20240828
